FAERS Safety Report 15052723 (Version 2)
Quarter: 2018Q3

REPORT INFORMATION
  Report Type: Spontaneous
  Country: US (occurrence: US)
  Receive Date: 20180622
  Receipt Date: 20180711
  Transmission Date: 20181010
  Serious: No
  Sender: FDA-Public Use
  Company Number: US-GLAXOSMITHKLINE-US2018109961

PATIENT
  Age: 59 Year
  Sex: Female
  Weight: 63.95 kg

DRUGS (9)
  1. AIRDUO [Concomitant]
  2. NUCALA [Suspect]
     Active Substance: MEPOLIZUMAB
     Indication: ASTHMA
     Dosage: 100 UG, CYC
     Route: 058
     Dates: start: 20180515, end: 20180620
  3. BUDESONIDE. [Concomitant]
     Active Substance: BUDESONIDE
     Route: 045
  4. FOOD ENZYME [Concomitant]
  5. MAGNESIUM [Concomitant]
     Active Substance: MAGNESIUM
  6. VITAMIN E [Concomitant]
     Active Substance: .ALPHA.-TOCOPHEROL
  7. NORVASC [Concomitant]
     Active Substance: AMLODIPINE BESYLATE
  8. PREDNISONE. [Concomitant]
     Active Substance: PREDNISONE
  9. TURMERIC [Concomitant]
     Active Substance: HERBALS\TURMERIC

REACTIONS (5)
  - Headache [Unknown]
  - Rash [Unknown]
  - Eczema [Unknown]
  - Irritability [Unknown]
  - Miliaria [Not Recovered/Not Resolved]

NARRATIVE: CASE EVENT DATE: 201805
